FAERS Safety Report 10218921 (Version 1)
Quarter: 2014Q2

REPORT INFORMATION
  Report Type: Spontaneous
  Country: US (occurrence: US)
  Receive Date: 20140605
  Receipt Date: 20140605
  Transmission Date: 20141212
  Serious: No
  Sender: FDA-Public Use
  Company Number: US-TEVA-485213USA

PATIENT
  Age: 42 Year
  Sex: Female
  Weight: 29.06 kg

DRUGS (5)
  1. FENTORA [Suspect]
     Indication: BACK PAIN
     Route: 002
     Dates: start: 2012
  2. FENTORA [Suspect]
     Indication: NEURALGIA
  3. FENTORA [Suspect]
     Indication: PAIN IN EXTREMITY
  4. MORPHINE [Concomitant]
     Indication: PAIN
  5. FLEXERIL [Concomitant]
     Indication: PAIN

REACTIONS (2)
  - Pain [Not Recovered/Not Resolved]
  - Off label use [Unknown]
